FAERS Safety Report 8175996-5 (Version None)
Quarter: 2012Q1

REPORT INFORMATION
  Report Type: 
  Country: None (occurrence: None)
  Receive Date: 20120301
  Receipt Date: 20120227
  Transmission Date: 20120608
  Serious: No
  Sender: FDA-Public Use
  Company Number: US-PFIZER INC-2012052782

PATIENT
  Sex: Female
  Weight: 67.12 kg

DRUGS (2)
  1. KENALOG [Suspect]
     Indication: ARTHRITIS
     Dosage: 40 MG, UNK
     Dates: start: 20120227
  2. IBUPROFEN (ADVIL) [Suspect]
     Dosage: UNK
     Route: 048
     Dates: start: 20120227

REACTIONS (3)
  - OROPHARYNGEAL PAIN [None]
  - PAIN [None]
  - NERVOUSNESS [None]
